FAERS Safety Report 4960579-8 (Version None)
Quarter: 2006Q2

REPORT INFORMATION
  Report Type: 
  Country: None (occurrence: None)
  Receive Date: 20060403
  Receipt Date: 20051129
  Transmission Date: 20061013
  Serious: Yes (Life-Threatening, Hospitalization, Other)
  Sender: FDA-Public Use
  Company Number: 2005AC01886

PATIENT
  Age: 41 Year
  Sex: Male

DRUGS (12)
  1. QUETIAPINE [Suspect]
     Indication: BIPOLAR DISORDER
     Route: 048
  2. QUETIAPINE [Suspect]
     Indication: GENERALISED ANXIETY DISORDER
     Route: 048
  3. QUETIAPINE [Suspect]
     Route: 048
  4. QUETIAPINE [Suspect]
     Route: 048
  5. QUETIAPINE [Suspect]
     Route: 048
  6. QUETIAPINE [Suspect]
     Route: 048
  7. VALPROIC ACID [Concomitant]
  8. GABAPENTIN [Concomitant]
  9. DESIPRAMINE HCL [Concomitant]
  10. PAROXETINE [Concomitant]
  11. HYDROXYZINE [Concomitant]
  12. ATORVASTATIN CALCIUM [Concomitant]

REACTIONS (12)
  - ACUTE RESPIRATORY DISTRESS SYNDROME [None]
  - BACTERAEMIA [None]
  - CONVULSION [None]
  - ELECTROCARDIOGRAM QRS COMPLEX PROLONGED [None]
  - ELECTROCARDIOGRAM QT CORRECTED INTERVAL PROLONGED [None]
  - HYPOXIA [None]
  - LUNG INFILTRATION [None]
  - MYOCLONUS [None]
  - OVERDOSE [None]
  - RESPIRATORY FAILURE [None]
  - SOMNOLENCE [None]
  - SUICIDE ATTEMPT [None]
